FAERS Safety Report 5960350-4 (Version None)
Quarter: 2008Q4

REPORT INFORMATION
  Report Type: 
  Country: None (occurrence: None)
  Receive Date: 20081120
  Receipt Date: 20081106
  Transmission Date: 20090506
  Serious: Yes (Other)
  Sender: FDA-Public Use
  Company Number: US-ELI_LILLY_AND_COMPANY-US200811001634

PATIENT
  Sex: Female

DRUGS (2)
  1. FORTEO [Suspect]
     Dosage: UNK, UNK
     Dates: start: 20070823, end: 20080101
  2. FORTEO [Suspect]
     Dates: start: 20080801

REACTIONS (3)
  - BREAST CANCER [None]
  - ORAL DISORDER [None]
  - PRURITUS [None]
